FAERS Safety Report 9437376 (Version 1)
Quarter: 2013Q3

REPORT INFORMATION
  Report Type: Report from Study
  Country: US (occurrence: US)
  Receive Date: 20130802
  Receipt Date: 20130802
  Transmission Date: 20140515
  Serious: Yes (Other)
  Sender: FDA-Public Use
  Company Number: US-US-EMD SERONO, INC.-7226863

PATIENT
  Sex: Male

DRUGS (2)
  1. REBIF [Suspect]
     Indication: MULTIPLE SCLEROSIS
     Route: 058
     Dates: start: 20130620, end: 20130724
  2. ESCITALOPRAM [Concomitant]
     Indication: DEPRESSION

REACTIONS (3)
  - Suicidal ideation [Unknown]
  - Secondary progressive multiple sclerosis [Unknown]
  - Influenza like illness [Unknown]
